FAERS Safety Report 11427603 (Version 1)
Quarter: 2015Q3

REPORT INFORMATION
  Report Type: Spontaneous
  Country: US (occurrence: US)
  Receive Date: 20150827
  Receipt Date: 20150827
  Transmission Date: 20151125
  Serious: No
  Sender: FDA-Public Use
  Company Number: US-SA-2015SA115136

PATIENT
  Age: 74 Year
  Sex: Female
  Weight: 88.4 kg

DRUGS (2)
  1. AVAPRO [Suspect]
     Active Substance: IRBESARTAN
     Indication: BLOOD PRESSURE MEASUREMENT
     Dosage: AVAPRO 150 MG
     Route: 065
  2. AVAPRO [Suspect]
     Active Substance: IRBESARTAN
     Indication: BLOOD PRESSURE MEASUREMENT
     Dosage: AVAPRO 300 MG?BREAKING THE TABLET IN TWO
     Route: 065

REACTIONS (1)
  - Wrong technique in product usage process [Unknown]
